FAERS Safety Report 4367070-0 (Version None)
Quarter: 2004Q2

REPORT INFORMATION
  Report Type: 
  Country: None (occurrence: None)
  Receive Date: 20040528
  Receipt Date: 20040422
  Transmission Date: 20050107
  Serious: Yes (Hospitalization, Disabling)
  Sender: FDA-Public Use
  Company Number: FR-MERCK-0404FRA00080

PATIENT
  Age: 48 Year
  Sex: Male

DRUGS (2)
  1. ZOCOR [Suspect]
     Indication: HYPERCHOLESTEROLAEMIA
     Route: 048
     Dates: start: 19970101, end: 20030101
  2. ZOCOR [Suspect]
     Route: 048
     Dates: start: 20030101, end: 20040419

REACTIONS (1)
  - GUILLAIN-BARRE SYNDROME [None]
